FAERS Safety Report 4424568-4 (Version None)
Quarter: 2004Q3

REPORT INFORMATION
  Report Type: 
  Country: None (occurrence: None)
  Receive Date: 20040719
  Receipt Date: 20031110
  Transmission Date: 20050211
  Serious: Yes (Hospitalization)
  Sender: FDA-Public Use
  Company Number: 185570

PATIENT
  Age: 48 Year
  Sex: Female
  Weight: 73.4827 kg

DRUGS (15)
  1. AVONEX [Suspect]
     Indication: MULTIPLE SCLEROSIS
     Dosage: 30 MCG QW IM
     Route: 030
     Dates: start: 19990101, end: 20030101
  2. AVONEX [Suspect]
     Indication: MULTIPLE SCLEROSIS
     Dosage: 30 MCG BIW IM
     Route: 030
     Dates: start: 20030101, end: 20030801
  3. AVONEX [Suspect]
     Indication: MULTIPLE SCLEROSIS
     Dosage: 30 MCG BIW IM
     Route: 030
     Dates: start: 20030801
  4. NEURONTIN [Concomitant]
  5. TEGRETOL [Concomitant]
  6. ZANAFLEX [Concomitant]
  7. DIOVAN [Concomitant]
  8. ALDACTONE [Concomitant]
  9. PREMARIN [Concomitant]
  10. ACTIVELLE [Concomitant]
  11. LIPITOR [Concomitant]
  12. NASONEX [Concomitant]
  13. CLARITIN [Concomitant]
  14. CLARINEX [Concomitant]
  15. VITAMIN NOS [Concomitant]

REACTIONS (1)
  - MULTIPLE SCLEROSIS RELAPSE [None]
